FAERS Safety Report 12879001 (Version 2)
Quarter: 2017Q1

REPORT INFORMATION
  Report Type: Spontaneous
  Country: DE (occurrence: DE)
  Receive Date: 20161024
  Receipt Date: 20170315
  Transmission Date: 20170428
  Serious: Yes (Hospitalization)
  Sender: FDA-Public Use
  Company Number: DE-UCBSA-2016040227

PATIENT
  Age: 64 Year
  Sex: Male

DRUGS (21)
  1. ERGENYL CHRONO [Concomitant]
     Active Substance: VALPROIC ACID
     Dosage: 300-0-150 MG
     Dates: start: 20160908
  2. LAMOTRIGINE. [Concomitant]
     Active Substance: LAMOTRIGINE
     Dosage: 100 MG, 2X/DAY (BID)
     Dates: start: 20160915
  3. ERGENYL CHRONO [Concomitant]
     Active Substance: VALPROIC ACID
     Dosage: 300 MG, 2X/DAY (BID)
     Dates: start: 20160901
  4. VIMPAT [Suspect]
     Active Substance: LACOSAMIDE
     Dosage: REDUCED DOSE
     Dates: start: 201608, end: 20160818
  5. PROPRANOLOL [Concomitant]
     Active Substance: PROPRANOLOL HYDROCHLORIDE
     Indication: PRODUCT USED FOR UNKNOWN INDICATION
     Dosage: UNK
  6. PROPRANOLOL [Concomitant]
     Active Substance: PROPRANOLOL HYDROCHLORIDE
     Dosage: 40 MG, ONCE DAILY (QD)
  7. VALPROATE [Concomitant]
     Active Substance: VALPROIC ACID
     Dosage: 1200 MG DAILY DOSE
  8. ERGENYL CHRONO [Concomitant]
     Active Substance: VALPROIC ACID
     Dosage: 150 MG, 2X/DAY (BID)
     Dates: start: 20160915
  9. ERGENYL CHRONO [Concomitant]
     Active Substance: VALPROIC ACID
     Dosage: 100 MG, 2X/DAY (BID)
  10. VIMPAT [Suspect]
     Active Substance: LACOSAMIDE
     Dosage: 100 MG, 2X/DAY (BID)
     Dates: start: 201608, end: 201608
  11. VALPROATE [Concomitant]
     Active Substance: VALPROIC ACID
     Dosage: 150 MG, WEEKLY (QW)
  12. LAMOTRIGINE. [Concomitant]
     Active Substance: LAMOTRIGINE
     Indication: PRODUCT USED FOR UNKNOWN INDICATION
     Dosage: 50 MG, 2X/DAY (BID)
  13. LAMOTRIGINE. [Concomitant]
     Active Substance: LAMOTRIGINE
     Dosage: 100 MG, 2X/DAY (BID)
  14. ERGENYL CHRONO [Concomitant]
     Active Substance: VALPROIC ACID
     Indication: PRODUCT USED FOR UNKNOWN INDICATION
     Dosage: 450-0-300 MG
     Dates: start: 20160825
  15. VIMPAT [Suspect]
     Active Substance: LACOSAMIDE
     Indication: PRODUCT USED FOR UNKNOWN INDICATION
     Dosage: 2X50MG
  16. VALPROATE [Concomitant]
     Active Substance: VALPROIC ACID
     Dosage: 450 MG, 2X/DAY (BID)
     Dates: start: 20160818
  17. ERGENYL CHRONO [Concomitant]
     Active Substance: VALPROIC ACID
     Dosage: 150 MG
     Dates: start: 20160922
  18. LAMOTRIGINE. [Concomitant]
     Active Substance: LAMOTRIGINE
     Dosage: 100-0-75 MG
     Dates: start: 20160901
  19. VALPROATE [Concomitant]
     Active Substance: VALPROIC ACID
     Indication: PRODUCT USED FOR UNKNOWN INDICATION
     Dosage: 900-0-1200 MG
  20. LAMOTRIGINE. [Concomitant]
     Active Substance: LAMOTRIGINE
     Dosage: 75 MG, 2X/DAY (BID)
     Dates: start: 20160825
  21. LAMOTRIGINE. [Concomitant]
     Active Substance: LAMOTRIGINE
     Dosage: 100-0-75 MG
     Dates: start: 20160908

REACTIONS (13)
  - Vertigo [Unknown]
  - Toxicity to various agents [Unknown]
  - Polyneuropathy [Unknown]
  - Skin lesion [Unknown]
  - Hypotension [Unknown]
  - Dizziness [Recovered/Resolved]
  - Blood pressure diastolic increased [Unknown]
  - Loss of consciousness [Unknown]
  - Syncope [Unknown]
  - Diplopia [Recovered/Resolved]
  - Depression [Recovering/Resolving]
  - Monocyte count increased [Unknown]
  - Mean cell volume increased [Unknown]

NARRATIVE: CASE EVENT DATE: 20160815
